FAERS Safety Report 4307510-6 (Version None)
Quarter: 2004Q1

REPORT INFORMATION
  Report Type: 
  Country: None (occurrence: None)
  Receive Date: 20040226
  Receipt Date: 20040220
  Transmission Date: 20041129
  Serious: Yes (Hospitalization)
  Sender: FDA-Public Use
  Company Number: FR-JNJFOC-20040204533

PATIENT
  Age: 62 Year
  Sex: Male
  Weight: 82 kg

DRUGS (12)
  1. REMICADE [Suspect]
     Indication: RHEUMATOID ARTHRITIS
     Dosage: 300 MG, 1 IN 1 MONTH, INTRAVENOUS
     Route: 042
     Dates: start: 20021024
  2. PREDNISONE [Concomitant]
  3. CELEBREX [Concomitant]
  4. ARAVA [Concomitant]
  5. SECTRAL [Concomitant]
  6. DIGOXIN [Concomitant]
  7. OGAST (LANSOPRAZOLE) [Concomitant]
  8. CARDEGIC (ACETYLSALICYLATE LYSINE) [Concomitant]
  9. ACETAMINOPHEN [Concomitant]
  10. CACIT D3 (LEKOVIT CA) [Concomitant]
  11. XATRAL (ALFUZOSIN) [Concomitant]
  12. ANDROGEL [Concomitant]

REACTIONS (3)
  - HEADACHE [None]
  - INFLUENZA LIKE ILLNESS [None]
  - VIRAL INFECTION [None]
